FAERS Safety Report 7492091-9 (Version None)
Quarter: 2011Q2

REPORT INFORMATION
  Report Type: 
  Country: None (occurrence: None)
  Receive Date: 20110519
  Receipt Date: 20110510
  Transmission Date: 20111010
  Serious: Yes (Death, Hospitalization, Other)
  Sender: FDA-Public Use
  Company Number: PL-AMGEN-POLSP2011024246

PATIENT
  Age: 63 Year
  Sex: Female
  Weight: 56 kg

DRUGS (3)
  1. CISPLATIN [Concomitant]
     Dosage: UNK
     Route: 042
     Dates: start: 20110429, end: 20110511
  2. VEPESID [Concomitant]
     Dosage: UNK
     Route: 042
     Dates: start: 20110429, end: 20110511
  3. NEULASTA [Suspect]
     Indication: CHEMOTHERAPY
     Dosage: 6 MG, UNK
     Route: 058
     Dates: start: 20110502, end: 20110502

REACTIONS (6)
  - PANCYTOPENIA [None]
  - PYREXIA [None]
  - VOMITING [None]
  - GENERAL PHYSICAL HEALTH DETERIORATION [None]
  - DRUG INEFFECTIVE [None]
  - FEBRILE NEUTROPENIA [None]
